FAERS Safety Report 24340014 (Version 1)
Quarter: 2024Q3

REPORT INFORMATION
  Report Type: Spontaneous
  Country: US (occurrence: US)
  Receive Date: 20240919
  Receipt Date: 20240919
  Transmission Date: 20241017
  Serious: Yes (Death, Other)
  Sender: BRISTOL MYERS SQUIBB
  Company Number: US-BRISTOL-MYERS SQUIBB COMPANY-2024-148841

PATIENT
  Age: 82 Year
  Sex: Female
  Weight: 56.25 kg

DRUGS (24)
  1. POMALYST [Suspect]
     Active Substance: POMALIDOMIDE
     Indication: Plasma cell myeloma
     Route: 048
     Dates: start: 20240824
  2. DICYCLOMINE [Concomitant]
     Active Substance: DICYCLOMINE HYDROCHLORIDE
  3. ASPIRIN [Concomitant]
     Active Substance: ASPIRIN
  4. ROSUVASTATIN CALCIUM [Concomitant]
     Active Substance: ROSUVASTATIN CALCIUM
  5. MONTELUKAST SODIUM [Concomitant]
     Active Substance: MONTELUKAST\MONTELUKAST SODIUM
  6. ALPRAZOLAM [Concomitant]
     Active Substance: ALPRAZOLAM
  7. ALBUTEROL [Concomitant]
     Active Substance: ALBUTEROL
     Dosage: 90 MCG / ACTUATION AER
  8. SYMBICORT [Concomitant]
     Active Substance: BUDESONIDE\FORMOTEROL FUMARATE DIHYDRATE
     Dosage: 160-4.5 MCG INHA
  9. SENNA TIME [Concomitant]
     Active Substance: SENNOSIDES A AND B
     Dosage: M
  10. GABAPENTIN [Concomitant]
     Active Substance: GABAPENTIN
  11. ZOLPIDEM TARTRATE [Concomitant]
     Active Substance: ZOLPIDEM TARTRATE
  12. DEXAMETHASONE [Concomitant]
     Active Substance: DEXAMETHASONE
  13. FUROSEMIDE [Concomitant]
     Active Substance: FUROSEMIDE
  14. ACYCLOVIR [Concomitant]
     Active Substance: ACYCLOVIR
  15. ONDANSETRON [Concomitant]
     Active Substance: ONDANSETRON
     Dosage: ODT
  16. FAMOTIDINE [Concomitant]
     Active Substance: FAMOTIDINE
  17. LEVOTHYROXINE SODIUM [Concomitant]
     Active Substance: LEVOTHYROXINE SODIUM
  18. NIFEDIPINE [Concomitant]
     Active Substance: NIFEDIPINE
  19. PANTOPRAZOLE [Concomitant]
     Active Substance: PANTOPRAZOLE
     Dosage: TER
  20. DRONABINOL [Concomitant]
     Active Substance: DRONABINOL
  21. METHOCARBAMOL [Concomitant]
     Active Substance: METHOCARBAMOL
  22. METFORMIN HYDROCHLORIDE [Concomitant]
     Active Substance: METFORMIN HYDROCHLORIDE
  23. ALBUTEROL\IPRATROPIUM [Concomitant]
     Active Substance: ALBUTEROL\IPRATROPIUM
     Dosage: 0.5-3MG/3ML
  24. HYDROXYZINE HYDROCHLORIDE [Concomitant]
     Active Substance: HYDROXYZINE HYDROCHLORIDE

REACTIONS (1)
  - Death [Fatal]

NARRATIVE: CASE EVENT DATE: 20240911
